FAERS Safety Report 23243468 (Version 2)
Quarter: 2023Q4

REPORT INFORMATION
  Report Type: Spontaneous
  Country: JP (occurrence: JP)
  Receive Date: 20231130
  Receipt Date: 20231201
  Transmission Date: 20240110
  Serious: Yes (Hospitalization, Disabling, Other)
  Sender: FDA-Public Use
  Company Number: JP-UCBJ-CD202311944UCBPHAPROD

PATIENT
  Age: 48 Year
  Sex: Male

DRUGS (1)
  1. CIMZIA [Suspect]
     Active Substance: CERTOLIZUMAB PEGOL
     Indication: Psoriasis
     Dosage: UNK MILLIGRAM
     Route: 058

REACTIONS (3)
  - Cerebral infarction [Recovered/Resolved with Sequelae]
  - Rehabilitation therapy [Unknown]
  - Psoriasis [Unknown]

NARRATIVE: CASE EVENT DATE: 20230801
